FAERS Safety Report 8298451-0 (Version None)
Quarter: 2012Q2

REPORT INFORMATION
  Report Type: 
  Country: None (occurrence: None)
  Receive Date: 20120419
  Receipt Date: 20120410
  Transmission Date: 20120825
  Serious: Yes (Hospitalization)
  Sender: FDA-Public Use
  Company Number: ZA-ASTRAZENECA-2012SE19023

PATIENT
  Age: 561 Month
  Sex: Male

DRUGS (1)
  1. SYMBICORT [Suspect]
     Indication: LOWER RESPIRATORY TRACT INFECTION
     Dosage: 160/4.5 MCG UNKNOWN
     Route: 055

REACTIONS (2)
  - LOWER RESPIRATORY TRACT INFECTION [None]
  - CIRCUMSTANCE OR INFORMATION CAPABLE OF LEADING TO MEDICATION ERROR [None]
